FAERS Safety Report 20227129 (Version 2)
Quarter: 2022Q1

REPORT INFORMATION
  Report Type: Report from Study
  Country: US (occurrence: US)
  Receive Date: 20211224
  Receipt Date: 20220329
  Transmission Date: 20220423
  Serious: No
  Sender: FDA-Public Use
  Company Number: US-NOVARTISTESTPH-NVSC2021US293833

PATIENT
  Age: 8 Year
  Sex: Male

DRUGS (1)
  1. OMNITROPE [Suspect]
     Active Substance: SOMATROPIN
     Indication: Product used for unknown indication
     Dosage: 1 DOSAGE FORM, QD
     Route: 065

REACTIONS (5)
  - Pain [Unknown]
  - Contusion [Unknown]
  - Device failure [Unknown]
  - Drug dose omission by device [Unknown]
  - Wrong device used [Unknown]

NARRATIVE: CASE EVENT DATE: 20211221
